FAERS Safety Report 21001074 (Version 1)
Quarter: 2022Q2

REPORT INFORMATION
  Report Type: Spontaneous
  Country: US (occurrence: US)
  Receive Date: 20220624
  Receipt Date: 20220624
  Transmission Date: 20220721
  Serious: No
  Sender: FDA-Public Use
  Company Number: US-BioHaven Pharmaceuticals-2022BHV000686

PATIENT
  Age: 85 Year
  Sex: Female

DRUGS (1)
  1. NURTEC ODT [Suspect]
     Active Substance: RIMEGEPANT SULFATE
     Indication: Prophylaxis
     Dosage: PATIENT TOOK A TOTAL OF 3 DOSES AND THEN DISCONTINUED THE PRODUCT ON AN UNSPECIFIED DATE.
     Route: 065
     Dates: start: 20220224, end: 2022

REACTIONS (2)
  - Insomnia [Unknown]
  - Illness [Unknown]
